FAERS Safety Report 16357866 (Version 1)
Quarter: 2019Q2

REPORT INFORMATION
  Report Type: Report from Study
  Country: IT (occurrence: IT)
  Receive Date: 20190527
  Receipt Date: 20190527
  Transmission Date: 20190711
  Serious: Yes (Hospitalization)
  Sender: FDA-Public Use
  Company Number: IT-TEVA-2019-IT-1054431

PATIENT
  Age: 81 Year
  Sex: Male

DRUGS (4)
  1. SINVACOR [Suspect]
     Active Substance: SIMVASTATIN
     Dates: start: 20180316, end: 20190316
  2. IGROTON [Concomitant]
     Active Substance: CHLORTHALIDONE
  3. HUMALOG [Concomitant]
     Active Substance: INSULIN LISPRO
  4. TICLOPIDINE [Suspect]
     Active Substance: TICLOPIDINE
     Indication: THROMBOSIS PROPHYLAXIS
     Route: 048
     Dates: start: 20180316, end: 20190316

REACTIONS (1)
  - Anaemia [Unknown]

NARRATIVE: CASE EVENT DATE: 20190316
